FAERS Safety Report 10169246 (Version 1)
Quarter: 2014Q2

REPORT INFORMATION
  Report Type: Spontaneous
  Country: JP (occurrence: None)
  Receive Date: 20140509
  Receipt Date: 20140509
  Transmission Date: 20141212
  Serious: Yes (Other)
  Sender: FDA-Public Use
  Company Number: JP-ALKEM-000577

PATIENT
  Age: 22 Year
  Sex: Male

DRUGS (3)
  1. LAMOTRIGINE [Suspect]
     Indication: BIPOLAR I DISORDER
     Dosage: 1 DAY
  2. LAMOTRIGINE [Suspect]
     Indication: HYPOMANIA
     Dosage: 1 DAY
  3. CLOMIPRAMINE (CLOMIPRAMINE) [Concomitant]

REACTIONS (2)
  - Anger [None]
  - Aggression [None]
